FAERS Safety Report 10444010 (Version 1)
Quarter: 2014Q3

REPORT INFORMATION
  Report Type: Not Available
  Country: US (occurrence: US)
  Receive Date: 20140910
  Receipt Date: 20140910
  Transmission Date: 20150326
  Serious: No
  Sender: FDA-Public Use
  Company Number: US-LUPIN PHARMACEUTICALS INC.-E2B_00002288

PATIENT
  Age: 32 Year
  Sex: Female

DRUGS (1)
  1. LEVETIRACETAM TABLETS USP 500MG [Suspect]
     Active Substance: LEVETIRACETAM
     Indication: PRODUCT USED FOR UNKNOWN INDICATION
     Dates: start: 20140707, end: 20140707

REACTIONS (3)
  - Drug dispensing error [Unknown]
  - Maternal exposure timing unspecified [Unknown]
  - No adverse event [Unknown]

NARRATIVE: CASE EVENT DATE: 20140707
